APPROVED DRUG PRODUCT: ESTRASORB
Active Ingredient: ESTRADIOL HEMIHYDRATE
Strength: 0.25%
Dosage Form/Route: EMULSION;TOPICAL
Application: N021371 | Product #001
Applicant: EXELTIS USA INC
Approved: Oct 9, 2003 | RLD: Yes | RS: No | Type: DISCN